FAERS Safety Report 17259801 (Version 3)
Quarter: 2020Q1

REPORT INFORMATION
  Report Type: Spontaneous
  Country: JP (occurrence: JP)
  Receive Date: 20200110
  Receipt Date: 20200204
  Transmission Date: 20200409
  Serious: Yes (Hospitalization, Other)
  Sender: FDA-Public Use
  Company Number: JP-BAXTER-2020BAX000680

PATIENT
  Age: 38 Year
  Sex: Female

DRUGS (7)
  1. PEGFILGRASTIM [Concomitant]
     Active Substance: PEGFILGRASTIM
     Indication: BREAST CANCER STAGE II
     Dosage: ON DAY 2
     Route: 065
  2. CYCLOPHOSPHAMIDE. [Concomitant]
     Active Substance: CYCLOPHOSPHAMIDE
     Indication: BREAST CANCER STAGE II
     Dosage: ON DAY 1, REPEATED EVERY TWO WEEKS; CYCLICAL
     Route: 065
  3. DEXAMETHASONE. [Concomitant]
     Active Substance: DEXAMETHASONE
     Dosage: REPEATED EVERY TWO WEEKS; CYCLICAL
     Route: 065
  4. DEXAMETHASONE. [Concomitant]
     Active Substance: DEXAMETHASONE
     Indication: BREAST CANCER STAGE II
     Dosage: ON DAYS 2-4, REPEATED EVERY TWO WEEKS; CYCLICAL
     Route: 065
  5. DOCETAXEL. [Concomitant]
     Active Substance: DOCETAXEL
     Indication: BREAST CANCER STAGE II
     Dosage: EVERY 3 WEEKS; CYCLICAL
     Route: 065
  6. DOXIL [Suspect]
     Active Substance: DOXORUBICIN HYDROCHLORIDE
     Indication: BREAST CANCER STAGE II
     Dosage: ON DAY 1, REPEATED EVERY TWO WEEKS; CYCLICAL
     Route: 065
  7. DOXORUBICIN [Concomitant]
     Active Substance: DOXORUBICIN
     Indication: BREAST CANCER STAGE II
     Dosage: ON DAY 1, REPEATED EVERY TWO WEEKS
     Route: 065

REACTIONS (3)
  - Pneumonitis [Recovering/Resolving]
  - Respiratory failure [Recovering/Resolving]
  - Pneumocystis jirovecii pneumonia [Recovering/Resolving]
